FAERS Safety Report 7466910-6 (Version None)
Quarter: 2011Q2

REPORT INFORMATION
  Report Type: 
  Country: None (occurrence: None)
  Receive Date: 20110505
  Receipt Date: 20110505
  Transmission Date: 20111010
  Serious: Yes (Death)
  Sender: FDA-Public Use
  Company Number: None

PATIENT
  Age: 69 Year
  Sex: Male

DRUGS (7)
  1. DOCUSATE [Concomitant]
  2. AMIODARONE HCL [Concomitant]
  3. HYDROCODONE BITARTRATE AND ACETAMINOPHEN [Concomitant]
  4. CARVEDILOL [Concomitant]
  5. REVLIMID [Suspect]
     Indication: MULTIPLE MYELOMA
     Dosage: REVLIMID 5 MG DAILY X21D/28D ORALLY
     Route: 048
     Dates: start: 20100801, end: 20100901
  6. RENVELA [Concomitant]
  7. BISACODYL [Concomitant]

REACTIONS (6)
  - THROMBOCYTOPENIA [None]
  - GENERAL PHYSICAL HEALTH DETERIORATION [None]
  - ANAEMIA [None]
  - SKIN LESION [None]
  - LIVEDO RETICULARIS [None]
  - SKIN ULCER [None]
